FAERS Safety Report 25614662 (Version 2)
Quarter: 2025Q3

REPORT INFORMATION
  Report Type: Report from Study
  Country: IN (occurrence: IN)
  Receive Date: 20250729
  Receipt Date: 20250930
  Transmission Date: 20251020
  Serious: Yes (Hospitalization, Other)
  Sender: ROCHE
  Company Number: IN-ROCHE-10000347332

PATIENT
  Age: 63 Year
  Sex: Male
  Weight: 77 kg

DRUGS (16)
  1. CELLCEPT [Suspect]
     Active Substance: MYCOPHENOLATE MOFETIL
     Indication: Renal transplant
     Dosage: 1 MORNING , 1 DINNER
     Route: 048
     Dates: start: 20190917, end: 202507
  2. PREDNISOLONE [Concomitant]
     Active Substance: PREDNISOLONE
     Dosage: 1 AFTER BREAKFAST - DAILY - 15 DAYS
  3. TACROLIMUS [Concomitant]
     Active Substance: TACROLIMUS
     Dosage: 1 - MORNING, 1 - DINNER DAILY - 15 DAYS
  4. NEXPRO RD [Concomitant]
     Dosage: 1 BEFORE BREAKFAST - DAILY - 15 DAYS
  5. AMLODIPINE BESYLATE [Concomitant]
     Active Substance: AMLODIPINE BESYLATE
     Dosage: 1 MORNING , 1 DINNER, DAILY - 15 DAYS
  6. MOXCENT [Concomitant]
     Dosage: 1 AFTER BREAKFAST, 1 AFTER DINNER, AFTER FOOD - DAILY - 15 DAYS
  7. MINIPRESS [Concomitant]
     Active Substance: PRAZOSIN HYDROCHLORIDE
     Dosage: 1 MORNING , 1 DINNER, DAILY - 15 DAYS
  8. ASPIRIN [Concomitant]
     Active Substance: ASPIRIN
     Dosage: 1 BEFORE DINNER - DAILY - 15 DAYS
  9. SHELCAL XT [Concomitant]
     Dosage: 1 MORNING , 1 DINNER, DAILY - 15 DAYS
  10. INJ. APIDRA PEN SOLOSTAR [Concomitant]
  11. TRAGENTA [Concomitant]
     Dosage: 1 BEFORE LUNCH DAILY, 15 DAYS
  12. METFORMIN HYDROCHLORIDE [Concomitant]
     Active Substance: METFORMIN HYDROCHLORIDE
     Dosage: 1 BEFORE BREAKFAST, 1 BEFORE LUNCH, 1 BEFORE DINNER, DAILY 15 DAYS
  13. TORGET [Concomitant]
     Dosage: 1 MORNING, 1 AFTERNOON, DAILY-15 DAYS
  14. AZITHROMYCIN [Concomitant]
     Active Substance: AZITHROMYCIN
     Dosage: 1, MORNING, DAILY 5 DAYS
  15. FEXOFENADINE\MONTELUKAST [Concomitant]
     Active Substance: FEXOFENADINE\MONTELUKAST
     Dosage: 1 DINNER, DAILY-1 WEEK
  16. RELENT PLUS [Concomitant]
     Dosage: 1 MORNING, 1 DINNER, DAILY 15 DAYS

REACTIONS (3)
  - Urethral stenosis [Recovered/Resolved]
  - Urinary tract infection [Recovered/Resolved]
  - Transplant rejection [Unknown]

NARRATIVE: CASE EVENT DATE: 20250701
